FAERS Safety Report 5383179-7 (Version None)
Quarter: 2007Q3

REPORT INFORMATION
  Report Type: 
  Country: None (occurrence: None)
  Receive Date: 20070710
  Receipt Date: 20070629
  Transmission Date: 20080115
  Serious: Yes (Other)
  Sender: FDA-Public Use
  Company Number: US-ELI_LILLY_AND_COMPANY-US200703003732

PATIENT
  Age: 76 Year
  Sex: Female
  Weight: 59.863 kg

DRUGS (9)
  1. FORTEO [Suspect]
     Indication: OSTEOPOROSIS
     Dosage: UNK, QOD
     Dates: start: 20070417
  2. FORTEO [Suspect]
     Dosage: 20 UG, DAILY (1/D)
     Dates: start: 20061015, end: 20070228
  3. FORTEO [Suspect]
     Dosage: 20 UG, QOD
     Dates: start: 20070321
  4. CALCIUM CHLORIDE [Concomitant]
     Dosage: 1500 MG, DAILY (1/D)
  5. CALCIUM CHLORIDE [Concomitant]
     Dosage: 2000 MG, UNK
     Dates: end: 20070101
  6. VITAMIN D [Concomitant]
     Dosage: 800 MG, DAILY (1/D)
  7. SIMVASTIN-MEPHA [Concomitant]
     Dosage: 40 MG, UNK
  8. QUINAPRIL [Concomitant]
     Dosage: 10 MG, UNK
  9. MULTI-VITAMIN [Concomitant]

REACTIONS (4)
  - ANAEMIA [None]
  - BLOOD URIC ACID INCREASED [None]
  - HYPERCALCAEMIA [None]
  - RENAL IMPAIRMENT [None]
